FAERS Safety Report 4399199-5 (Version None)
Quarter: 2004Q3

REPORT INFORMATION
  Report Type: 
  Country: None (occurrence: None)
  Receive Date: 20040715
  Receipt Date: 20040715
  Transmission Date: 20050211
  Serious: Yes (Disabling)
  Sender: FDA-Public Use
  Company Number: None

PATIENT
  Age: 61 Year
  Sex: Female
  Weight: 69.8539 kg

DRUGS (1)
  1. ARIMIDEX [Suspect]
     Dosage: DAILY ORAL
     Route: 048

REACTIONS (3)
  - ARTHRITIS [None]
  - BONE PAIN [None]
  - MYALGIA [None]
